FAERS Safety Report 13024439 (Version 3)
Quarter: 2017Q1

REPORT INFORMATION
  Report Type: Report from Study
  Country: None (occurrence: DE)
  Receive Date: 20161213
  Receipt Date: 20170209
  Transmission Date: 20170428
  Serious: Yes (Death, Hospitalization)
  Sender: FDA-Public Use
  Company Number: DE-ABBVIE-16P-062-1805085-00

PATIENT
  Age: 74 Year
  Sex: Male

DRUGS (13)
  1. DEKRISTOL [Concomitant]
     Active Substance: CHOLECALCIFEROL
     Indication: PRODUCT USED FOR UNKNOWN INDICATION
  2. HALDOL [Concomitant]
     Active Substance: HALOPERIDOL
     Indication: PRODUCT USED FOR UNKNOWN INDICATION
  3. DUODOPA [Suspect]
     Active Substance: CARBIDOPA\LEVODOPA
     Dosage: MD 5.5 ML; CRD 2.4 ML/H; CRN 2.4 ML/H; ED 1.2 ML
     Route: 050
  4. MAKROGOL [Concomitant]
     Indication: PRODUCT USED FOR UNKNOWN INDICATION
  5. MACROGOL [Concomitant]
     Active Substance: POLYETHYLENE GLYCOLS
     Indication: PRODUCT USED FOR UNKNOWN INDICATION
  6. NEXIUM [Concomitant]
     Active Substance: ESOMEPRAZOLE MAGNESIUM
     Indication: PRODUCT USED FOR UNKNOWN INDICATION
  7. DUODOPA [Suspect]
     Active Substance: CARBIDOPA\LEVODOPA
     Indication: PARKINSON^S DISEASE
     Dosage: MD 5.5ML, CRD 2.4ML/H, CRN 2.4ML/H, ED 1.2ML
     Route: 050
     Dates: start: 20160824, end: 201612
  8. MADOPAR LT [Concomitant]
     Active Substance: BENSERAZIDE HYDROCHLORIDE\LEVODOPA
     Indication: PRODUCT USED FOR UNKNOWN INDICATION
  9. CYMBALTA [Concomitant]
     Active Substance: DULOXETINE HYDROCHLORIDE
     Indication: PRODUCT USED FOR UNKNOWN INDICATION
  10. PARKINSAN [Concomitant]
     Indication: PRODUCT USED FOR UNKNOWN INDICATION
  11. OXAZEPAME [Concomitant]
     Indication: PRODUCT USED FOR UNKNOWN INDICATION
  12. DUODOPA [Suspect]
     Active Substance: CARBIDOPA\LEVODOPA
     Dosage: MD 5.5ML, CRD 2.6ML/H, CRN 2.4ML/H, ED 1.2ML
     Route: 050
     Dates: start: 201612
  13. PLAVIX [Concomitant]
     Active Substance: CLOPIDOGREL BISULFATE
     Indication: PRODUCT USED FOR UNKNOWN INDICATION

REACTIONS (2)
  - General physical health deterioration [Fatal]
  - Pneumonia [Not Recovered/Not Resolved]

NARRATIVE: CASE EVENT DATE: 201612
